FAERS Safety Report 5761476-0 (Version None)
Quarter: 2008Q2

REPORT INFORMATION
  Report Type: 
  Country: None (occurrence: None)
  Receive Date: 20080606
  Receipt Date: 20080606
  Transmission Date: 20081010
  Serious: Yes (Hospitalization)
  Sender: FDA-Public Use
  Company Number: US-BOEHRINGER INGELHEIM GMBH, GERMANY-2008-BP-08782RO

PATIENT
  Sex: Male

DRUGS (1)
  1. BALSALAZIDE DISODIUM [Suspect]
     Dates: start: 20080522

REACTIONS (1)
  - DYSPNOEA [None]
